FAERS Safety Report 4873829-3 (Version None)
Quarter: 2006Q1

REPORT INFORMATION
  Report Type: 
  Country: None (occurrence: None)
  Receive Date: 20060104
  Receipt Date: 20051220
  Transmission Date: 20060701
  Serious: Yes (Other)
  Sender: FDA-Public Use
  Company Number: IMP_1983_2005

PATIENT
  Age: 74 Year
  Sex: Female
  Weight: 43.0917 kg

DRUGS (4)
  1. CLARITIN-D [Suspect]
     Indication: SINUS CONGESTION
     Dosage: DF ONCE PO
     Route: 048
     Dates: start: 20050415, end: 20050415
  2. ASCORBIC ACID [Concomitant]
  3. MSM [Concomitant]
  4. NEURONTIN [Concomitant]

REACTIONS (8)
  - DISORIENTATION [None]
  - GENERALISED ERYTHEMA [None]
  - HALLUCINATION [None]
  - INSOMNIA [None]
  - PAIN [None]
  - PHARMACEUTICAL PRODUCT COMPLAINT [None]
  - PRURITUS GENERALISED [None]
  - SKIN BURNING SENSATION [None]
